FAERS Safety Report 21596116 (Version 1)
Quarter: 2022Q4

REPORT INFORMATION
  Report Type: Report from Study
  Country: US (occurrence: US)
  Receive Date: 20221115
  Receipt Date: 20221115
  Transmission Date: 20230113
  Serious: No
  Sender: FDA-Public Use
  Company Number: US-ABBVIE-4156326

PATIENT
  Sex: Female

DRUGS (4)
  1. HUMIRA [Suspect]
     Active Substance: ADALIMUMAB
     Indication: Rheumatoid arthritis
     Route: 058
  2. Pfizer/BioNTech [Concomitant]
     Indication: COVID-19 immunisation
     Dosage: ONCE
     Route: 030
     Dates: start: 20210405, end: 20210405
  3. Pfizer/BioNTech [Concomitant]
     Indication: COVID-19 immunisation
     Route: 048
     Dates: start: 20211005, end: 20211005
  4. Pfizer/BioNTech [Concomitant]
     Indication: COVID-19 immunisation
     Dosage: ONCE
     Route: 030
     Dates: start: 20210302, end: 20210302

REACTIONS (1)
  - Bursitis [Not Recovered/Not Resolved]
